FAERS Safety Report 6437803-8 (Version None)
Quarter: 2009Q4

REPORT INFORMATION
  Report Type: 
  Country: None (occurrence: None)
  Receive Date: 20091112
  Receipt Date: 20091103
  Transmission Date: 20100525
  Serious: Yes (Hospitalization, Other)
  Sender: FDA-Public Use
  Company Number: BR-ABBOTT-09P-020-0606507-00

PATIENT
  Sex: Female
  Weight: 67 kg

DRUGS (3)
  1. HUMIRA [Suspect]
     Indication: RHEUMATOID ARTHRITIS
     Route: 058
     Dates: start: 20050810, end: 20090801
  2. LOSARTAN [Concomitant]
     Indication: HYPERTENSION
     Route: 048
     Dates: start: 20090924
  3. CLORANA [Concomitant]
     Indication: DIURETIC THERAPY
     Dosage: 1/2 TABLET
     Dates: start: 20091101

REACTIONS (2)
  - EMPHYSEMA [None]
  - PNEUMONIA [None]
